FAERS Safety Report 18534954 (Version 1)
Quarter: 2020Q4

REPORT INFORMATION
  Report Type: Spontaneous
  Country: US (occurrence: US)
  Receive Date: 20201123
  Receipt Date: 20201123
  Transmission Date: 20210114
  Serious: Yes (Other)
  Sender: FDA-Public Use
  Company Number: US-PURDUE-USA-2020-0167694

PATIENT

DRUGS (4)
  1. ZOLPIDEM [Concomitant]
     Active Substance: ZOLPIDEM TARTRATE
     Indication: PRODUCT USED FOR UNKNOWN INDICATION
     Dosage: 10 MG, UNK
     Route: 065
  2. OXYCODONE/ ACETAMINOPHEN TABLETS [Suspect]
     Active Substance: ACETAMINOPHEN\OXYCODONE HYDROCHLORIDE
     Indication: BREAKTHROUGH PAIN
     Dosage: 7.5MG-325 MG
     Route: 048
  3. MORPHINE SULFATE (SIMILAR TO NDA 19-516) [Suspect]
     Active Substance: MORPHINE SULFATE
     Indication: PAIN MANAGEMENT
     Dosage: 30 MG, Q12H
     Route: 065
  4. TRAMADOL. [Suspect]
     Active Substance: TRAMADOL
     Indication: PRODUCT USED FOR UNKNOWN INDICATION
     Dosage: 50 MG, Q8H
     Route: 048

REACTIONS (18)
  - Depression [Unknown]
  - Fear [Unknown]
  - Hallucination, auditory [Unknown]
  - Stress [Unknown]
  - Emotional distress [Unknown]
  - Anxiety [Unknown]
  - Frustration tolerance decreased [Unknown]
  - Personality change [Unknown]
  - Anger [Unknown]
  - Disturbance in attention [Unknown]
  - Drug dependence [Unknown]
  - Mental disorder [Unknown]
  - Schizophrenia [Unknown]
  - Hallucination [Unknown]
  - Psychiatric symptom [Unknown]
  - Apathy [Unknown]
  - General physical condition abnormal [Unknown]
  - Drug withdrawal syndrome [Unknown]
